FAERS Safety Report 8858988 (Version 1)
Quarter: 2012Q4

REPORT INFORMATION
  Report Type: 
  Country: JP (occurrence: JP)
  Receive Date: 20121024
  Receipt Date: 20121024
  Transmission Date: 20130627
  Serious: Yes (Other)
  Sender: FDA-Public Use
  Company Number: JP-ASTELLAS-2012JP009959

PATIENT
  Age: 40 Year
  Sex: Male

DRUGS (4)
  1. PROGRAF [Suspect]
     Indication: BONE MARROW TRANSPLANT
     Dosage: UNK
     Route: 048
     Dates: start: 2012
  2. FLUCONAZOL [Interacting]
     Dosage: UNK
     Route: 065
     Dates: start: 2012
  3. CLARITHROMYCIN [Interacting]
     Dosage: UNK
     Route: 048
     Dates: start: 2012
  4. PROGRAF [Suspect]
     Indication: BONE MARROW TRANSPLANT
     Dosage: UNK
     Route: 065
     Dates: end: 2012

REACTIONS (6)
  - Drug ineffective [Unknown]
  - Intentional drug misuse [Unknown]
  - Graft versus host disease [Unknown]
  - Blood creatinine increased [Recovering/Resolving]
  - Drug interaction [Unknown]
  - Drug interaction [Unknown]
